FAERS Safety Report 20780453 (Version 1)
Quarter: 2022Q2

REPORT INFORMATION
  Report Type: Other
  Country: AU (occurrence: AU)
  Receive Date: 20220504
  Receipt Date: 20220504
  Transmission Date: 20220721
  Serious: No
  Sender: FDA-Public Use
  Company Number: AU-TOLMAR, INC.-22AU032892

PATIENT
  Age: 85 Year
  Sex: Male

DRUGS (1)
  1. ELIGARD [Suspect]
     Active Substance: LEUPROLIDE ACETATE
     Indication: Prostate cancer
     Dosage: 45 MILLIGRAM, Q 6 MONTH
     Dates: start: 20200810

REACTIONS (4)
  - Fall [Unknown]
  - Bone contusion [Unknown]
  - Limb injury [Unknown]
  - Haematoma [Unknown]

NARRATIVE: CASE EVENT DATE: 20211201
